FAERS Safety Report 7128167-5 (Version None)
Quarter: 2010Q4

REPORT INFORMATION
  Report Type: 
  Country: None (occurrence: None)
  Receive Date: 20101130
  Receipt Date: 20101116
  Transmission Date: 20110411
  Serious: Yes (Hospitalization, Other)
  Sender: FDA-Public Use
  Company Number: PHHY2010JP78237

PATIENT
  Sex: Male

DRUGS (6)
  1. AFINITOR [Suspect]
     Indication: METASTATIC RENAL CELL CARCINOMA
     Dosage: 10 MG DAILY
     Route: 048
     Dates: start: 20100515, end: 20100604
  2. INTERFERON ALFA [Concomitant]
     Indication: METASTATIC RENAL CELL CARCINOMA
     Dosage: 6000000IU
     Dates: start: 20060301, end: 20070901
  3. SUNITINIB MALATE [Concomitant]
     Indication: METASTATIC RENAL CELL CARCINOMA
     Dosage: 50MG
     Route: 048
     Dates: start: 20100405, end: 20100423
  4. NOVAMIN [Concomitant]
     Dosage: 15MG
     Route: 048
     Dates: start: 20100414, end: 20100524
  5. NORVASC [Concomitant]
     Dosage: 10MG
     Route: 048
     Dates: start: 20100416, end: 20100604
  6. THYRADIN S [Concomitant]
     Dosage: 50MG
     Route: 048
     Dates: start: 20100326, end: 20100604

REACTIONS (2)
  - BLOOD CREATININE INCREASED [None]
  - STOMATITIS [None]
